FAERS Safety Report 23723534 (Version 2)
Quarter: 2024Q2

REPORT INFORMATION
  Report Type: Spontaneous
  Country: US (occurrence: US)
  Receive Date: 20240409
  Receipt Date: 20240419
  Transmission Date: 20240716
  Serious: No
  Sender: FDA-Public Use
  Company Number: US-SA-SAC20240405001024

PATIENT
  Age: 32 Year
  Sex: Female

DRUGS (4)
  1. DUPIXENT [Suspect]
     Active Substance: DUPILUMAB
     Indication: Dermatitis atopic
     Dosage: 300MG, QOW
     Route: 058
  2. TACROLIMUS [Concomitant]
     Active Substance: TACROLIMUS
  3. FLUOCINONIDE [Concomitant]
     Active Substance: FLUOCINONIDE
  4. FLUOCINONIDE [Concomitant]
     Active Substance: FLUOCINONIDE

REACTIONS (1)
  - Pain of skin [Unknown]
